FAERS Safety Report 19902534 (Version 3)
Quarter: 2021Q4

REPORT INFORMATION
  Report Type: Spontaneous
  Country: US (occurrence: US)
  Receive Date: 20210930
  Receipt Date: 20211018
  Transmission Date: 20220303
  Serious: No
  Sender: FDA-Public Use
  Company Number: US-SANOFI-00784801

PATIENT
  Age: 51 Year
  Sex: Male

DRUGS (1)
  1. APIDRA [Suspect]
     Active Substance: INSULIN GLULISINE
     Indication: Type 1 diabetes mellitus
     Dosage: MEAL TIME, THREE TIMES A DAY AND MORE IF THE BLOOD SUGAR IS RUNNING HIGH
     Route: 065
     Dates: start: 2019

REACTIONS (4)
  - Blood glucose increased [Recovered/Resolved]
  - Drug ineffective [Recovered/Resolved]
  - Visual impairment [Unknown]
  - Intentional product use issue [Unknown]
